FAERS Safety Report 23551950 (Version 1)
Quarter: 2024Q1

REPORT INFORMATION
  Report Type: Spontaneous
  Country: US (occurrence: US)
  Receive Date: 20240222
  Receipt Date: 20240222
  Transmission Date: 20240410
  Serious: No
  Sender: FDA-Public Use
  Company Number: US-TAKEDA-2024TUS016087

PATIENT
  Age: 4 Month
  Weight: 6 kg

DRUGS (1)
  1. HYQVIA [Suspect]
     Active Substance: HUMAN IMMUNOGLOBULIN G\HYALURONIDASE (HUMAN RECOMBINANT)
     Indication: Combined immunodeficiency
     Dosage: 3 GRAM, Q3WEEKS
     Route: 065

REACTIONS (2)
  - Product prescribing issue [Unknown]
  - No adverse event [Unknown]
